FAERS Safety Report 16916590 (Version 2)
Quarter: 2019Q4

REPORT INFORMATION
  Report Type: Report from Study
  Country: None (occurrence: US)
  Receive Date: 20191014
  Receipt Date: 20191218
  Transmission Date: 20200122
  Serious: Yes (Hospitalization)
  Sender: FDA-Public Use
  Company Number: US-ABBVIE-19K-163-2914574-00

PATIENT
  Age: 54 Year
  Sex: Female
  Weight: 61.29 kg

DRUGS (3)
  1. HUMIRA [Suspect]
     Active Substance: ADALIMUMAB
     Indication: PSORIATIC ARTHROPATHY
     Route: 058
     Dates: start: 20190315, end: 20190430
  2. HUMIRA [Suspect]
     Active Substance: ADALIMUMAB
     Route: 058
     Dates: start: 20191120
  3. HUMIRA [Suspect]
     Active Substance: ADALIMUMAB
     Route: 058
     Dates: start: 201905, end: 20190805

REACTIONS (19)
  - Leukocytosis [Recovered/Resolved]
  - Kidney infection [Not Recovered/Not Resolved]
  - Onychomycosis [Recovering/Resolving]
  - Pyelonephritis [Recovered/Resolved]
  - Nail bed bleeding [Recovering/Resolving]
  - Pneumonia [Recovered/Resolved]
  - Epistaxis [Recovered/Resolved]
  - Sepsis [Recovered/Resolved]
  - Malaise [Recovered/Resolved]
  - Urinary tract infection [Recovered/Resolved]
  - Back pain [Recovered/Resolved]
  - Pneumonia [Recovered/Resolved]
  - Immunodeficiency [Not Recovered/Not Resolved]
  - Onychoclasis [Recovering/Resolving]
  - Cystitis [Recovered/Resolved]
  - Fungal infection [Recovered/Resolved]
  - Fungal infection [Unknown]
  - Urinary tract infection [Recovered/Resolved]
  - Injection site urticaria [Unknown]

NARRATIVE: CASE EVENT DATE: 201905
